FAERS Safety Report 5595612-6 (Version None)
Quarter: 2008Q1

REPORT INFORMATION
  Report Type: 
  Country: None (occurrence: None)
  Receive Date: 20080116
  Receipt Date: 20080116
  Transmission Date: 20080703
  Serious: Yes (Disabling)
  Sender: FDA-Public Use
  Company Number: None

PATIENT
  Sex: Male

DRUGS (6)
  1. SEROQUEL [Suspect]
     Indication: SCHIZOPHRENIA
     Dosage: 25 MG QAM PO
     Route: 048
     Dates: start: 20070314, end: 20071011
  2. SEROQUEL [Suspect]
     Dosage: 800 MG QHS PO
     Route: 048
  3. VYTORIN [Concomitant]
  4. GLUCOPHAGE [Concomitant]
  5. NOVOLOG [Concomitant]
  6. ADVAIR DISKUS 100/50 [Concomitant]

REACTIONS (5)
  - DIZZINESS [None]
  - DYSPHAGIA [None]
  - DYSPNOEA [None]
  - FATIGUE [None]
  - MALAISE [None]
